FAERS Safety Report 10507161 (Version 2)
Quarter: 2014Q4

REPORT INFORMATION
  Report Type: Spontaneous
  Country: CA (occurrence: CA)
  Receive Date: 20141009
  Receipt Date: 20141104
  Transmission Date: 20150528
  Serious: Yes (Other)
  Sender: FDA-Public Use
  Company Number: CA-GE HEALTHCARE MEDICAL DIAGNOSTICS-MYVW-PR-1409S-0102

PATIENT
  Age: 46 Year
  Sex: Male
  Weight: 98.06 kg

DRUGS (3)
  1. MYOVIEW [Suspect]
     Active Substance: TECHNETIUM TC-99M TETROFOSMIN\TETROFOSMIN
     Indication: DIAGNOSTIC PROCEDURE
  2. MYOVIEW [Suspect]
     Active Substance: TECHNETIUM TC-99M TETROFOSMIN\TETROFOSMIN
     Indication: ISCHAEMIA
     Route: 042
     Dates: start: 20140922, end: 20140922
  3. TECHNETIUM (TC99M) GENERATOR (MALLINCKRODT) [Concomitant]

REACTIONS (4)
  - Headache [Recovered/Resolved]
  - Pruritus [Recovered/Resolved]
  - Eosinophil count increased [Unknown]
  - Throat tightness [Recovered/Resolved]

NARRATIVE: CASE EVENT DATE: 20140922
